FAERS Safety Report 10181629 (Version 2)
Quarter: 2014Q2

REPORT INFORMATION
  Report Type: Spontaneous
  Country: US (occurrence: US)
  Receive Date: 20140519
  Receipt Date: 20140522
  Transmission Date: 20141212
  Serious: Yes (Hospitalization)
  Sender: FDA-Public Use
  Company Number: US-009507513-1405USA007488

PATIENT
  Age: 7 Year
  Sex: Male

DRUGS (1)
  1. FOSAMAX [Suspect]
     Indication: EAR INFECTION
     Dosage: 140 MG, ONCE (2 TABLETS ONCE)
     Route: 048
     Dates: start: 20110712, end: 20110712

REACTIONS (6)
  - Asthma [Recovering/Resolving]
  - Oesophageal disorder [Recovering/Resolving]
  - Vomiting [Recovering/Resolving]
  - Life support [Recovering/Resolving]
  - Off label use [Unknown]
  - Drug dispensing error [Unknown]
